FAERS Safety Report 13285155 (Version 2)
Quarter: 2017Q1

REPORT INFORMATION
  Report Type: Spontaneous
  Country: FI (occurrence: FI)
  Receive Date: 20170301
  Receipt Date: 20170322
  Transmission Date: 20170428
  Serious: Yes (Hospitalization)
  Sender: FDA-Public Use
  Company Number: FI-INCYTE CORPORATION-2017IN001510

PATIENT
  Age: 74 Year
  Sex: Male

DRUGS (8)
  1. BISOPROLOL [Concomitant]
     Active Substance: BISOPROLOL
     Indication: PRODUCT USED FOR UNKNOWN INDICATION
     Dosage: 1.25 MG, QD (0.5 DF)
     Route: 048
  2. CARDACE [Concomitant]
     Active Substance: RAMIPRIL
     Indication: PRODUCT USED FOR UNKNOWN INDICATION
     Dosage: 2.5 MG, QD
     Route: 065
  3. SOMAC [Concomitant]
     Active Substance: PANTOPRAZOLE SODIUM
     Indication: PRODUCT USED FOR UNKNOWN INDICATION
     Dosage: 40 MG, BID
     Route: 065
  4. PRIMASPAN [Concomitant]
     Active Substance: ASPIRIN
     Indication: PRODUCT USED FOR UNKNOWN INDICATION
     Dosage: 100 MG, QD
     Route: 065
  5. MILLIPRED [Concomitant]
     Active Substance: PREDNISOLONE
     Indication: PRODUCT USED FOR UNKNOWN INDICATION
     Dosage: 10 MG, QD
     Route: 065
  6. CALCICHEW D3 FORTE [Concomitant]
     Active Substance: CALCIUM\CHOLECALCIFEROL
     Indication: PRODUCT USED FOR UNKNOWN INDICATION
     Dosage: 2 DF, QD
     Route: 065
  7. JAKAVI [Suspect]
     Active Substance: RUXOLITINIB
     Indication: MYELOFIBROSIS
     Dosage: 15 MG, BID
     Route: 065
     Dates: start: 201510, end: 201611
  8. KLEXANE [Concomitant]
     Active Substance: ENOXAPARIN
     Indication: PRODUCT USED FOR UNKNOWN INDICATION
     Dosage: 60 MG, QD
     Route: 065

REACTIONS (4)
  - Pyrexia [Recovered/Resolved]
  - Chloroma [Recovering/Resolving]
  - Dyspnoea [Recovering/Resolving]
  - Second primary malignancy [Recovering/Resolving]

NARRATIVE: CASE EVENT DATE: 201610
